FAERS Safety Report 16859716 (Version 1)
Quarter: 2019Q4

REPORT INFORMATION
  Report Type: Spontaneous
  Country: US (occurrence: US)
  Receive Date: 20190926
  Receipt Date: 20190926
  Transmission Date: 20200122
  Serious: No
  Sender: FDA-Public Use
  Company Number: None

PATIENT
  Age: 31 Year
  Sex: Female
  Weight: 57.6 kg

DRUGS (8)
  1. LEVOFLOXACIN. [Suspect]
     Active Substance: LEVOFLOXACIN
     Indication: SINUSITIS
     Dosage: ?          QUANTITY:1 CAPSULE(S);?
     Route: 048
     Dates: start: 20190903, end: 20190911
  2. LEVOFLOXACIN. [Suspect]
     Active Substance: LEVOFLOXACIN
     Indication: STAPHYLOCOCCAL INFECTION
     Dosage: ?          QUANTITY:1 CAPSULE(S);?
     Route: 048
     Dates: start: 20190903, end: 20190911
  3. COENZYME Q10 [Concomitant]
     Active Substance: UBIDECARENONE
  4. MACA ROOT [Concomitant]
  5. FLAX SEED [Concomitant]
     Active Substance: FLAX SEED
  6. PROBIOTICS [Concomitant]
     Active Substance: PROBIOTICS NOS
  7. ACCUTANE [Concomitant]
     Active Substance: ISOTRETINOIN
  8. LYSINE [Concomitant]
     Active Substance: LYSINE

REACTIONS (6)
  - Panic attack [None]
  - Neurological symptom [None]
  - Hypoaesthesia [None]
  - Anxiety [None]
  - Insomnia [None]
  - Paraesthesia [None]

NARRATIVE: CASE EVENT DATE: 20190912
